FAERS Safety Report 16787259 (Version 1)
Quarter: 2019Q3

REPORT INFORMATION
  Report Type: Spontaneous
  Country: BR (occurrence: BR)
  Receive Date: 20190909
  Receipt Date: 20190909
  Transmission Date: 20191005
  Serious: Yes (Other)
  Sender: FDA-Public Use
  Company Number: BR-MYLANLABS-2019M1083359

PATIENT
  Age: 75 Year
  Sex: Female
  Weight: 58 kg

DRUGS (4)
  1. ACLASTA [Suspect]
     Active Substance: ZOLEDRONIC ACID
     Indication: OSTEOPOROSIS
     Dosage: 1 DOSAGE FORM Q12MO
     Route: 030
     Dates: start: 201703, end: 201703
  2. ATENOLOL. [Suspect]
     Active Substance: ATENOLOL
     Indication: HYPERTENSION
     Dosage: 1 DOSAGE FORM, QD
     Route: 048
  3. CALCITONIN SALMON MYLAN [Suspect]
     Active Substance: CALCITONIN SALMON
     Dosage: 1 DOSAGE FORM, QOD
     Route: 045
     Dates: start: 201901, end: 201905
  4. CALCITONIN SALMON MYLAN [Suspect]
     Active Substance: CALCITONIN SALMON
     Indication: OSTEOPOROSIS
     Dosage: 1 DOSAGE FORM, QOD
     Route: 045
     Dates: start: 19960825, end: 201703

REACTIONS (9)
  - Hip fracture [Recovering/Resolving]
  - Femur fracture [Recovered/Resolved]
  - Pelvic fracture [Recovered/Resolved]
  - Pubis fracture [Recovering/Resolving]
  - Fall [Recovered/Resolved]
  - Clavicle fracture [Recovered/Resolved]
  - Osteoporosis [Not Recovered/Not Resolved]
  - Blood cholesterol increased [Recovering/Resolving]
  - Disease progression [Not Recovered/Not Resolved]

NARRATIVE: CASE EVENT DATE: 1999
